FAERS Safety Report 8083778-8 (Version None)
Quarter: 2012Q1

REPORT INFORMATION
  Report Type: 
  Country: None (occurrence: None)
  Receive Date: 20120128
  Receipt Date: 20110201
  Transmission Date: 20120608
  Serious: No
  Sender: FDA-Public Use
  Company Number: US-ABBOTT-11P-163-0702203-00

PATIENT
  Age: 42 Year
  Sex: Female

DRUGS (6)
  1. WELLBUTRIN [Concomitant]
     Indication: DEPRESSION
  2. CYTOMEL [Concomitant]
     Indication: DEPRESSION
  3. HUMIRA [Suspect]
     Indication: PSORIATIC ARTHROPATHY
     Dosage: LOADING DOSE
     Dates: start: 20110129
  4. ARTHROTEC [Concomitant]
     Indication: PAIN
  5. ARTHROTEC [Concomitant]
     Indication: MUSCLE SPASMS
  6. FLEXERIL [Concomitant]
     Indication: PRODUCT USED FOR UNKNOWN INDICATION
     Dosage: AS NEEDED

REACTIONS (2)
  - NASOPHARYNGITIS [None]
  - COUGH [None]
